FAERS Safety Report 18838990 (Version 1)
Quarter: 2021Q1

REPORT INFORMATION
  Report Type: Spontaneous
  Country: CN (occurrence: CN)
  Receive Date: 20210203
  Receipt Date: 20210203
  Transmission Date: 20210419
  Serious: Yes (Hospitalization, Other)
  Sender: FDA-Public Use
  Company Number: CN-PFIZER INC-2021077489

PATIENT
  Age: 78 Year
  Sex: Female
  Weight: 48 kg

DRUGS (6)
  1. MEDROL [Suspect]
     Active Substance: METHYLPREDNISOLONE
     Indication: HORMONE THERAPY
     Dosage: 4 MG, 1X/DAY
     Route: 048
     Dates: start: 20201113, end: 20201113
  2. LEI GONG TENG DUO GAN [Concomitant]
     Indication: SYMPTOMATIC TREATMENT
     Dosage: 20 MG, 3X/DAY
     Route: 048
     Dates: start: 20201113, end: 20210105
  3. MEDROL [Suspect]
     Active Substance: METHYLPREDNISOLONE
     Dosage: UNK
     Route: 048
     Dates: start: 20210111, end: 20210112
  4. LEFLUNOMIDE. [Suspect]
     Active Substance: LEFLUNOMIDE
     Indication: RHEUMATOID ARTHRITIS
     Dosage: 20 MG, 1X/DAY
     Route: 048
     Dates: start: 20201113, end: 20201113
  5. LEFLUNOMIDE. [Suspect]
     Active Substance: LEFLUNOMIDE
     Dosage: UNK
     Route: 048
     Dates: start: 20210111, end: 20210112
  6. LEI GONG TENG DUO GAN [Concomitant]
     Dosage: UNK
     Dates: start: 20210111, end: 20210112

REACTIONS (3)
  - Peripheral swelling [Unknown]
  - Impaired healing [Recovering/Resolving]
  - Wound secretion [Recovering/Resolving]

NARRATIVE: CASE EVENT DATE: 202012
